FAERS Safety Report 23405219 (Version 1)
Quarter: 2024Q1

REPORT INFORMATION
  Report Type: Spontaneous
  Country: US (occurrence: None)
  Receive Date: 20240112
  Receipt Date: 20240112
  Transmission Date: 20240410
  Serious: Yes (Disabling)
  Sender: FDA-Public Use
  Company Number: None

PATIENT
  Age: 75 Year
  Sex: Female
  Weight: 67.5 kg

DRUGS (21)
  1. BOTOX [Suspect]
     Active Substance: ONABOTULINUMTOXINA
     Indication: Migraine
     Route: 030
     Dates: start: 20160222, end: 20170417
  2. ATENOLOL [Concomitant]
     Active Substance: ATENOLOL
  3. LEVOXYL [Concomitant]
     Active Substance: LEVOTHYROXINE SODIUM
  4. LEVOTHYROXINE [Concomitant]
     Active Substance: LEVOTHYROXINE
  5. ESTRADIOL [Concomitant]
     Active Substance: ESTRADIOL
  6. PROGESTERONE [Concomitant]
     Active Substance: PROGESTERONE
  7. ALPRAZOLAM [Concomitant]
     Active Substance: ALPRAZOLAM
  8. TRIAZOLAM [Concomitant]
     Active Substance: TRIAZOLAM
  9. MIRALAX [Concomitant]
     Active Substance: POLYETHYLENE GLYCOL 3350
  10. FISH OIL [Concomitant]
     Active Substance: FISH OIL
  11. AVOCADO OIL [Concomitant]
     Active Substance: AVOCADO OIL
  12. VITAMIN B COMPLEX [Concomitant]
     Active Substance: CYANOCOBALAMIN\DEXPANTHENOL\NIACINAMIDE\PYRIDOXINE HYDROCHLORIDE\RIBOFLAVIN 5^-PHOSPHATE SODIUM\THIA
  13. MULTI-VITAMIN [Concomitant]
     Active Substance: .ALPHA.-TOCOPHEROL ACETATE, DL-\ASCORBIC ACID\CYANOCOBALAMIN\FLUORIDE ION\FOLIC ACID\NIACIN\PYRIDOXI
  14. PARAFFIN [Concomitant]
     Active Substance: PARAFFIN
  15. VITAMIN D3 [Concomitant]
     Active Substance: CHOLECALCIFEROL
  16. Collagen powder [Concomitant]
  17. MAGNESIUM CITRATE [Concomitant]
     Active Substance: MAGNESIUM CITRATE
  18. CURCUMIN [Concomitant]
     Active Substance: CURCUMIN
  19. TEA LEAF [Concomitant]
     Active Substance: TEA LEAF
  20. DIETARY SUPPLEMENT [Concomitant]
     Active Substance: DIETARY SUPPLEMENT
  21. Megaspore probiotics [Concomitant]

REACTIONS (20)
  - Wrong technique in product usage process [None]
  - Vein rupture [None]
  - Neurological symptom [None]
  - Cognitive disorder [None]
  - Amnesia [None]
  - Vertigo [None]
  - Tinnitus [None]
  - Hyperacusis [None]
  - Vision blurred [None]
  - Diplopia [None]
  - Muscular weakness [None]
  - Muscular weakness [None]
  - Skin burning sensation [None]
  - Blister [None]
  - Alopecia totalis [None]
  - Alopecia universalis [None]
  - Madarosis [None]
  - Skin atrophy [None]
  - Skin disorder [None]
  - Impaired gastric emptying [None]

NARRATIVE: CASE EVENT DATE: 20160914
